FAERS Safety Report 8404338-2 (Version None)
Quarter: 2012Q2

REPORT INFORMATION
  Report Type: 
  Country: None (occurrence: None)
  Receive Date: 20120601
  Receipt Date: 20120523
  Transmission Date: 20120825
  Serious: Yes (Hospitalization)
  Sender: FDA-Public Use
  Company Number: JP-VERTEX PHARMACEUTICALS INC.-AE-2012-007784

PATIENT
  Age: 22 Year
  Sex: Female

DRUGS (6)
  1. TELAVIC (TELAPREVIR) [Suspect]
     Indication: HEPATITIS C
     Route: 048
     Dates: start: 20120403
  2. PEGINTERFERON ALFA-2B [Concomitant]
     Indication: HEPATITIS C
     Route: 051
     Dates: start: 20120403
  3. RIBAVIRIN [Concomitant]
     Indication: HEPATITIS C
     Route: 048
     Dates: start: 20120403
  4. ZANTAC [Concomitant]
     Route: 048
     Dates: start: 20120403
  5. ALLEGRA [Concomitant]
     Route: 048
     Dates: start: 20120405
  6. PREDNISOLONE [Concomitant]
     Route: 048
     Dates: start: 20120408

REACTIONS (4)
  - COUGH [None]
  - SKIN DISORDER [None]
  - RASH PRURITIC [None]
  - RASH ERYTHEMATOUS [None]
